FAERS Safety Report 25117840 (Version 1)
Quarter: 2025Q1

REPORT INFORMATION
  Report Type: Spontaneous
  Country: GB (occurrence: GB)
  Receive Date: 20250325
  Receipt Date: 20250325
  Transmission Date: 20250409
  Serious: Yes (Other)
  Sender: CIPLA
  Company Number: GB-MHRA-MED-202503111707394820-MHNTD

PATIENT

DRUGS (1)
  1. FINASTERIDE [Suspect]
     Active Substance: FINASTERIDE
     Indication: Product used for unknown indication
     Route: 065

REACTIONS (3)
  - Mood swings [Unknown]
  - Fatigue [Unknown]
  - Disturbance in attention [Unknown]
